FAERS Safety Report 24207344 (Version 3)
Quarter: 2024Q3

REPORT INFORMATION
  Report Type: Report from Study
  Country: US (occurrence: US)
  Receive Date: 20240813
  Receipt Date: 20240906
  Transmission Date: 20241017
  Serious: Yes (Hospitalization)
  Sender: BIOGEN
  Company Number: US-BIOGEN-2024BI01277889

PATIENT
  Sex: Male

DRUGS (20)
  1. TYSABRI [Suspect]
     Active Substance: NATALIZUMAB
     Indication: Multiple sclerosis
     Route: 050
     Dates: start: 20151103, end: 20191115
  2. TYSABRI [Suspect]
     Active Substance: NATALIZUMAB
     Route: 050
     Dates: start: 20200801
  3. ACETAMINOPHEN [Concomitant]
     Active Substance: ACETAMINOPHEN
     Indication: Pain
     Dosage: TAKE TWO TABLETS BY MOUTH EVERY 8 HOURS AS NEEDED FOR PAIN
     Route: 050
  4. ATORVASTATIN CALCIUM [Concomitant]
     Active Substance: ATORVASTATIN CALCIUM
     Indication: Blood cholesterol increased
     Dosage: TAKE ONE TABLET BY MOUTH AT BEDTIME FOR HIGH CHOLESTEROL
     Route: 050
  5. BACITRACIN [Concomitant]
     Active Substance: BACITRACIN
     Indication: Skin infection
     Dosage: 500 UNT/GM TOP OINT, APPLY SMALL AMOUNT TOPICALLY EVERY DAY AS NEEDED FOR MINOR SKIN INFECTION
     Route: 050
  6. EQV-FORFIVO XL [Concomitant]
     Indication: Depression
     Dosage: 1 TABLET EVERY MORNING
     Route: 050
  7. VITAMIN D3 [Concomitant]
     Active Substance: CHOLECALCIFEROL
     Indication: Vitamin supplementation
     Route: 050
  8. CITRIC ACID [Concomitant]
     Active Substance: CITRIC ACID MONOHYDRATE
     Indication: General symptom
     Route: 050
  9. CYANOCOBALAMIN [Concomitant]
     Active Substance: CYANOCOBALAMIN
     Indication: Vitamin supplementation
     Dosage: 1 TABLET BY MOUTH EVERY DAY
     Route: 050
  10. FAMOTIDINE [Concomitant]
     Active Substance: FAMOTIDINE
     Indication: Dyspepsia
     Dosage: 1 TABLET BY MOUTH EVERY DAY
     Route: 050
  11. LEVOFLOXACIN [Concomitant]
     Active Substance: LEVOFLOXACIN
     Indication: Urinary tract infection
     Route: 050
  12. LIDOCAINE 2.5/PRILOCAINE 2.5% [Concomitant]
     Indication: Urinary tract infection
     Dosage: APPLY MODERATE AMOUNT TOPICALLY AS NEEDED TO PORT SITE 30-60 MINUTES PRIOR TO ACCESSING
     Route: 050
  13. MESALAMINE [Concomitant]
     Active Substance: MESALAMINE
     Indication: Crohn^s disease
     Dosage: TAKE 2 TABLETS BY MOUTH EVERY DAY
     Route: 050
  14. MICONAZOLE NITRATE [Concomitant]
     Active Substance: MICONAZOLE NITRATE
     Indication: Fungal skin infection
     Dosage: APPLY LIBERALLY TOPICALLY EVERY DAY AS NEEDED
     Route: 050
  15. MODAFINIL [Concomitant]
     Active Substance: MODAFINIL
     Indication: Fungal skin infection
     Dosage: TAKE ONE TABLET BY MOUTH TWICE A DAY AT 8AM AND 1PM
     Route: 050
  16. ONDANSETRON HYDROCHLORIDE [Concomitant]
     Active Substance: ONDANSETRON HYDROCHLORIDE
     Indication: Nausea
     Dosage: TAKE ONE TABLET BY MOUTH TWICE A DAY AS NEEDED FOR NAUSEA
     Route: 050
  17. OXYCODONE [Concomitant]
     Active Substance: OXYCODONE
     Indication: Pain
     Dosage: 5MG TAB/CAP, TAKE ONE TABLET BY MOUTH EVERY 8 HOURS AS NEEDED
     Route: 050
  18. SIMETHICONE (DIMETHICONE) [Concomitant]
     Active Substance: DIMETHICONE
     Indication: Flatulence
     Route: 050
  19. SODIUM CHLORIDE [Concomitant]
     Active Substance: SODIUM CHLORIDE
     Indication: Urostomy
     Dosage: INJECT 10 ML SYR FLUSH EVERY 4 HOURS OR AS NEEDED TO FLUSH UROSTOMY
     Route: 050
  20. TRAZODONE HCL [Concomitant]
     Active Substance: TRAZODONE HYDROCHLORIDE
     Indication: Product used for unknown indication
     Dosage: TAKE ONE TO THREE TABLET (S) BY MOUTH AT BEDTIME AS NEEDED TAKE AS DIRECTED (TAKE ENOUGH TO SLEEP...
     Route: 050

REACTIONS (6)
  - Nephrolithiasis [Unknown]
  - Acute kidney injury [Unknown]
  - Stag horn calculus [Unknown]
  - Sepsis [Unknown]
  - Pneumonia [Unknown]
  - Urinary tract infection [Unknown]
